FAERS Safety Report 9789712 (Version 2)
Quarter: 2014Q3

REPORT INFORMATION
  Report Type: Spontaneous
  Country: DK (occurrence: DK)
  Receive Date: 20131231
  Receipt Date: 20140709
  Transmission Date: 20150326
  Serious: Yes (Hospitalization, Other)
  Sender: FDA-Public Use
  Company Number: DK-BAYER-2013-156843

PATIENT
  Age: 17 Year
  Sex: Female

DRUGS (1)
  1. YASMIN [Suspect]
     Active Substance: DROSPIRENONE\ETHINYL ESTRADIOL
     Dosage: 1 DF, QD
     Route: 048

REACTIONS (9)
  - Speech disorder [None]
  - Deep vein thrombosis [Recovering/Resolving]
  - Dysuria [None]
  - Local swelling [Recovering/Resolving]
  - Pain in extremity [Recovering/Resolving]
  - Clostridium difficile infection [None]
  - Diarrhoea [None]
  - Skin discolouration [Recovering/Resolving]
  - Abdominal pain lower [None]

NARRATIVE: CASE EVENT DATE: 2011
